FAERS Safety Report 15839107 (Version 2)
Quarter: 2019Q1

REPORT INFORMATION
  Report Type: Spontaneous
  Country: US (occurrence: US)
  Receive Date: 20190117
  Receipt Date: 20190325
  Transmission Date: 20190417
  Serious: No
  Sender: FDA-Public Use
  Company Number: US-PFIZER INC-2019019473

PATIENT
  Age: 55 Year
  Sex: Male
  Weight: 138.3 kg

DRUGS (1)
  1. SILDENAFIL CITRATE. [Suspect]
     Active Substance: SILDENAFIL CITRATE
     Indication: ERECTILE DYSFUNCTION
     Dosage: 40 MG, AS NEEDED (20MG 2 TAB DAILY PRN- NO MORE THAN 2 TAB/24O)
     Route: 048
     Dates: start: 201803

REACTIONS (2)
  - Drug ineffective for unapproved indication [Recovered/Resolved with Sequelae]
  - Intentional overdose [Recovered/Resolved with Sequelae]

NARRATIVE: CASE EVENT DATE: 2018
